FAERS Safety Report 8277327-9 (Version None)
Quarter: 2012Q2

REPORT INFORMATION
  Report Type: 
  Country: None (occurrence: None)
  Receive Date: 20120412
  Receipt Date: 20120404
  Transmission Date: 20120825
  Serious: Yes (Other)
  Sender: FDA-Public Use
  Company Number: CH-GLAXOSMITHKLINE-B0794307A

PATIENT
  Age: 79 Year
  Sex: Female
  Weight: 76 kg

DRUGS (20)
  1. ALLOPURINOL [Concomitant]
     Route: 048
  2. CALCIUM SANDOZ FORTE [Concomitant]
     Route: 048
  3. SOMNIUM [Concomitant]
     Route: 048
  4. CARVEDILOL [Concomitant]
     Route: 048
  5. MELATONIN [Concomitant]
     Route: 048
  6. VITAMINS + MINERALS [Concomitant]
     Route: 048
  7. HYDROCORTISONE [Concomitant]
     Dosage: 10MG TWICE PER DAY
     Route: 048
  8. FENISTIL [Suspect]
     Indication: PRODUCT USED FOR UNKNOWN INDICATION
     Route: 042
     Dates: start: 20120203, end: 20120203
  9. LEVOTHYROXINE SODIUM [Concomitant]
     Dosage: .1MG PER DAY
     Route: 048
  10. ASPIRIN [Concomitant]
     Dosage: 300MG PER DAY
     Route: 048
  11. MAGNESIOCARD [Concomitant]
     Dosage: 10MG PER DAY
     Route: 048
  12. PRAVASTATIN SODIUM [Concomitant]
     Dosage: 20MG PER DAY
     Route: 048
  13. JANUVIA [Concomitant]
     Dosage: 100MG PER DAY
     Route: 048
  14. ZANTAC [Suspect]
     Indication: PRODUCT USED FOR UNKNOWN INDICATION
     Route: 042
     Dates: start: 20120203, end: 20120203
  15. VITAMIN D [Concomitant]
     Route: 048
  16. PASPERTIN [Concomitant]
     Route: 048
  17. MULTIHANCE [Suspect]
     Indication: PRODUCT USED FOR UNKNOWN INDICATION
     Route: 042
     Dates: start: 20120203, end: 20120203
  18. CETIRIZINE HCL [Concomitant]
     Dosage: 10MG PER DAY
     Route: 048
  19. TORSEMIDE [Concomitant]
     Dosage: 10MG PER DAY
     Route: 048
  20. GLICLAZID [Concomitant]
     Route: 048

REACTIONS (5)
  - CARDIAC FAILURE [None]
  - DYSPNOEA [None]
  - MALAISE [None]
  - ASTHENIA [None]
  - ATRIAL TACHYCARDIA [None]
